FAERS Safety Report 7688342-8 (Version None)
Quarter: 2011Q3

REPORT INFORMATION
  Report Type: 
  Country: None (occurrence: None)
  Receive Date: 20110817
  Receipt Date: 20110810
  Transmission Date: 20111222
  Serious: Yes (Other)
  Sender: FDA-Public Use
  Company Number: CA-PFIZER INC-2011128851

PATIENT
  Age: 56 Year
  Sex: Male
  Weight: 68 kg

DRUGS (1)
  1. SUNITINIB MALATE [Suspect]
     Indication: GASTROINTESTINAL STROMAL TUMOUR
     Dosage: 50 MG, 1X/DAY
     Route: 048
     Dates: start: 20101022, end: 20110617

REACTIONS (4)
  - DISEASE PROGRESSION [None]
  - ABDOMINAL DISTENSION [None]
  - ASCITES [None]
  - GASTROINTESTINAL STROMAL TUMOUR [None]
